FAERS Safety Report 9821758 (Version 1)
Quarter: 2014Q1

REPORT INFORMATION
  Report Type: Spontaneous
  Country: US (occurrence: US)
  Receive Date: 20140116
  Receipt Date: 20140116
  Transmission Date: 20141002
  Serious: No
  Sender: FDA-Public Use
  Company Number: US-PFIZER INC-2014012863

PATIENT
  Age: 60 Year
  Sex: Female
  Weight: 87.08 kg

DRUGS (3)
  1. CELEBREX [Suspect]
     Indication: BACK PAIN
     Dosage: 100 MG, 1X/DAY
     Route: 048
  2. CELEBREX [Suspect]
     Dosage: 100 MG, 1X/DAY
     Route: 048
  3. CELEBREX [Suspect]
     Dosage: 100 MG, 1X/DAY
     Route: 048

REACTIONS (3)
  - Back disorder [Unknown]
  - Back pain [Unknown]
  - Pain [Unknown]
